FAERS Safety Report 10410943 (Version 3)
Quarter: 2015Q3

REPORT INFORMATION
  Report Type: Report from Study
  Country: BR (occurrence: BR)
  Receive Date: 20140826
  Receipt Date: 20150908
  Transmission Date: 20151125
  Serious: Yes (Hospitalization, Other)
  Sender: FDA-Public Use
  Company Number: BR-ABBVIE-10P-020-0624338-00

PATIENT
  Age: 59 Year
  Sex: Female
  Weight: 93 kg

DRUGS (9)
  1. HUMIRA [Suspect]
     Active Substance: ADALIMUMAB
     Indication: PSORIATIC ARTHROPATHY
     Route: 058
     Dates: start: 20090112, end: 200912
  2. HUMIRA [Suspect]
     Active Substance: ADALIMUMAB
     Indication: RHEUMATOID ARTHRITIS
     Route: 058
     Dates: start: 20091201, end: 201002
  3. HUMIRA [Suspect]
     Active Substance: ADALIMUMAB
     Route: 058
     Dates: end: 201405
  4. HUMIRA [Suspect]
     Active Substance: ADALIMUMAB
     Route: 058
  5. PANTOPRAZOLE [Concomitant]
     Active Substance: PANTOPRAZOLE SODIUM
     Indication: GASTRIC DISORDER
     Route: 048
     Dates: start: 201408
  6. METHOTREXATE [Concomitant]
     Active Substance: METHOTREXATE
     Indication: ARTHRITIS
     Route: 048
     Dates: start: 2007
  7. MICROLAX [Concomitant]
     Indication: PAIN
     Route: 048
     Dates: start: 2008
  8. MOSSINOL [Concomitant]
     Indication: GASTRIC DISORDER
     Route: 048
     Dates: start: 201408
  9. DIOVAN [Concomitant]
     Active Substance: VALSARTAN
     Indication: HYPERTENSION
     Route: 048
     Dates: start: 2010

REACTIONS (25)
  - Feeling abnormal [Unknown]
  - Diverticulitis [Not Recovered/Not Resolved]
  - Benign ovarian tumour [Recovered/Resolved]
  - Uterine polyp [Recovering/Resolving]
  - Cough [Recovered/Resolved]
  - Influenza [Recovering/Resolving]
  - Psoriasis [Not Recovered/Not Resolved]
  - Diabetes mellitus [Not Recovered/Not Resolved]
  - Headache [Recovered/Resolved]
  - Spinal pain [Recovered/Resolved]
  - Cough [Recovered/Resolved]
  - Rhinitis [Recovering/Resolving]
  - Haemorrhage [Recovered/Resolved]
  - Weight increased [Recovering/Resolving]
  - Influenza [Recovered/Resolved]
  - Weight decreased [Unknown]
  - Oropharyngeal pain [Recovered/Resolved]
  - Leiomyoma [Not Recovered/Not Resolved]
  - Vaginal haemorrhage [Recovered/Resolved]
  - Pneumonia [Recovered/Resolved]
  - Diabetes mellitus [Not Recovered/Not Resolved]
  - Endometriosis [Recovering/Resolving]
  - Lung infection [Recovered/Resolved]
  - Diabetes mellitus [Recovering/Resolving]
  - Sneezing [Recovering/Resolving]

NARRATIVE: CASE EVENT DATE: 200907
